FAERS Safety Report 18393621 (Version 5)
Quarter: 2020Q4

REPORT INFORMATION
  Report Type: Spontaneous
  Country: US (occurrence: US)
  Receive Date: 20201016
  Receipt Date: 20201216
  Transmission Date: 20210114
  Serious: No
  Sender: FDA-Public Use
  Company Number: US-BIOGEN-2020BI00933179

PATIENT
  Age: 73 Year
  Sex: Female

DRUGS (3)
  1. PLEGRIDY [Suspect]
     Active Substance: PEGINTERFERON BETA-1A
     Route: 065
     Dates: start: 20200729, end: 20201006
  2. PLEGRIDY [Suspect]
     Active Substance: PEGINTERFERON BETA-1A
     Indication: MULTIPLE SCLEROSIS
     Route: 065
     Dates: start: 20200729, end: 202010
  3. PLEGRIDY [Suspect]
     Active Substance: PEGINTERFERON BETA-1A
     Route: 065
     Dates: end: 20200927

REACTIONS (9)
  - Mobility decreased [Recovered/Resolved]
  - Blood pressure increased [Unknown]
  - Chest pain [Unknown]
  - Panic attack [Unknown]
  - Injection site erythema [Not Recovered/Not Resolved]
  - Arthralgia [Unknown]
  - Gait disturbance [Recovered/Resolved]
  - Abdominal pain lower [Unknown]
  - Headache [Recovered/Resolved]

NARRATIVE: CASE EVENT DATE: 202009
